FAERS Safety Report 5442155-6 (Version None)
Quarter: 2007Q3

REPORT INFORMATION
  Report Type: 
  Country: None (occurrence: None)
  Receive Date: 20070904
  Receipt Date: 20070822
  Transmission Date: 20080115
  Serious: Yes (Hospitalization, Other)
  Sender: FDA-Public Use
  Company Number: US-PFIZER INC-2007047471

PATIENT
  Sex: Female

DRUGS (1)
  1. CHANTIX [Suspect]

REACTIONS (19)
  - ABDOMINAL PAIN UPPER [None]
  - ABNORMAL DREAMS [None]
  - COUGH [None]
  - FALL [None]
  - FATIGUE [None]
  - FEELING ABNORMAL [None]
  - FEELING COLD [None]
  - FEELING HOT [None]
  - HAEMOPTYSIS [None]
  - HYPERHIDROSIS [None]
  - INSOMNIA [None]
  - MALAISE [None]
  - NAUSEA [None]
  - PELVIC FRACTURE [None]
  - PNEUMONIA [None]
  - POLLAKIURIA [None]
  - PULMONARY OEDEMA [None]
  - SOMNOLENCE [None]
  - SUICIDAL IDEATION [None]
